FAERS Safety Report 14797969 (Version 1)
Quarter: 2018Q2

REPORT INFORMATION
  Report Type: Spontaneous
  Country: US (occurrence: US)
  Receive Date: 20180424
  Receipt Date: 20180424
  Transmission Date: 20180711
  Serious: No
  Sender: FDA-Public Use
  Company Number: US-TEVA-2018-US-872719

PATIENT
  Sex: Female

DRUGS (1)
  1. ESTRADIOL TEVA [Suspect]
     Active Substance: ESTRADIOL
     Route: 067

REACTIONS (4)
  - Device issue [Unknown]
  - Poor sanitation [Unknown]
  - Wrong technique in product usage process [Unknown]
  - Drug ineffective [Unknown]
